FAERS Safety Report 7191433-1 (Version None)
Quarter: 2010Q4

REPORT INFORMATION
  Report Type: 
  Country: None (occurrence: None)
  Receive Date: 20101223
  Receipt Date: 20101221
  Transmission Date: 20110411
  Serious: Yes (Hospitalization)
  Sender: FDA-Public Use
  Company Number: FR-PFIZER INC-2010115859

PATIENT
  Age: 44 Year
  Sex: Male

DRUGS (5)
  1. XANAX [Suspect]
     Indication: ALCOHOL WITHDRAWAL SYNDROME
     Dosage: 1 DF, 3X/DAY
     Route: 048
     Dates: end: 20100825
  2. ZYPREXA [Suspect]
     Indication: BIPOLAR DISORDER
     Dosage: 1 DF, 1X/DAY
     Route: 048
     Dates: end: 20100825
  3. BISOPROLOL FUMARATE [Suspect]
     Indication: HYPERTENSION
     Dosage: 1 DF, 1X/DAY
     Route: 048
     Dates: end: 20100825
  4. ANAFRANIL [Suspect]
     Indication: DEPRESSION
     Dosage: UNK
     Route: 048
     Dates: start: 20100805
  5. PROZAC [Suspect]
     Indication: ALCOHOL WITHDRAWAL SYNDROME
     Dosage: 1 DF, 1X/DAY
     Route: 048
     Dates: start: 20100401

REACTIONS (2)
  - HEPATITIS ACUTE [None]
  - THROMBOCYTOPENIA [None]
